FAERS Safety Report 8327105-7 (Version None)
Quarter: 2012Q2

REPORT INFORMATION
  Report Type: 
  Country: None (occurrence: None)
  Receive Date: 20120501
  Receipt Date: 20120310
  Transmission Date: 20120825
  Serious: Yes (Other)
  Sender: FDA-Public Use
  Company Number: US-SANOFI-AVENTIS-2012SA017084

PATIENT
  Age: 59 Year
  Sex: Female

DRUGS (2)
  1. APIDRA [Suspect]
     Dosage: PER SLIDING SCALE
     Route: 058
     Dates: start: 20110101
  2. HUMALIN [Suspect]
     Route: 065

REACTIONS (5)
  - VISUAL IMPAIRMENT [None]
  - BLOOD GLUCOSE INCREASED [None]
  - HEAD DISCOMFORT [None]
  - BLOOD GLUCOSE DECREASED [None]
  - MALAISE [None]
